FAERS Safety Report 20070691 (Version 1)
Quarter: 2021Q4

REPORT INFORMATION
  Report Type: Spontaneous
  Country: US (occurrence: None)
  Receive Date: 20211115
  Receipt Date: 20211115
  Transmission Date: 20220303
  Serious: Yes (Death, Hospitalization)
  Sender: FDA-Public Use
  Company Number: None

PATIENT
  Age: 72 Year
  Sex: Male
  Weight: 73.3 kg

DRUGS (13)
  1. REMDESIVIR [Suspect]
     Active Substance: REMDESIVIR
     Indication: COVID-19
     Dates: start: 20211106, end: 20211108
  2. TYLENOL [Concomitant]
     Active Substance: ACETAMINOPHEN
     Dates: start: 20211106, end: 20211107
  3. CEFTRIAXONE [Concomitant]
     Active Substance: CEFTRIAXONE
     Dates: start: 20211106, end: 20211109
  4. DEXAMETHASONE [Concomitant]
     Active Substance: DEXAMETHASONE
     Dates: start: 20211105, end: 20211112
  5. DOXYCYCLINE [Concomitant]
     Active Substance: DOXYCYCLINE
     Dates: start: 20211106, end: 20211109
  6. FENTANYL [Concomitant]
     Active Substance: FENTANYL
     Dates: start: 20211108, end: 20211110
  7. HEPARIN [Concomitant]
     Active Substance: HEPARIN SODIUM
     Dates: start: 20211105, end: 20211112
  8. INSULIN LISPRO [Concomitant]
     Active Substance: INSULIN LISPRO
     Dates: start: 20211106, end: 20211111
  9. INSULIN NOS [Concomitant]
     Active Substance: INSULIN NOS
  10. NOREPINEPHRINE [Concomitant]
     Active Substance: NOREPINEPHRINE
     Dates: start: 20211105, end: 20211105
  11. NOREPINEPHRINE [Concomitant]
     Active Substance: NOREPINEPHRINE
     Dates: start: 20211108, end: 20211109
  12. PROPOFOL [Concomitant]
     Active Substance: PROPOFOL
     Dates: start: 20211108, end: 20211112
  13. ticagrelor (home med) [Concomitant]
     Dates: start: 20211105, end: 20211112

REACTIONS (5)
  - Liver function test increased [None]
  - Unresponsive to stimuli [None]
  - Pulse absent [None]
  - COVID-19 [None]
  - Death [None]

NARRATIVE: CASE EVENT DATE: 20211109
